FAERS Safety Report 20229205 (Version 2)
Quarter: 2022Q2

REPORT INFORMATION
  Report Type: Spontaneous
  Country: US (occurrence: US)
  Receive Date: 20211225
  Receipt Date: 20220429
  Transmission Date: 20220721
  Serious: Yes (Other)
  Sender: FDA-Public Use
  Company Number: US-AMGEN-USASP2021200600

PATIENT
  Age: 74 Year
  Sex: Female

DRUGS (3)
  1. PROLIA [Suspect]
     Active Substance: DENOSUMAB
     Indication: Osteoporosis postmenopausal
     Dosage: UNK
     Route: 065
     Dates: start: 2014
  2. VITAMIN D3 [Concomitant]
     Active Substance: CHOLECALCIFEROL
  3. CORTISONE [Concomitant]
     Active Substance: CORTISONE
     Dosage: UNK

REACTIONS (3)
  - Spondylolisthesis [Unknown]
  - Aphthous ulcer [Unknown]
  - Arthralgia [Unknown]
